FAERS Safety Report 6155130-3 (Version None)
Quarter: 2009Q2

REPORT INFORMATION
  Report Type: 
  Country: None (occurrence: None)
  Receive Date: 20090415
  Receipt Date: 20070620
  Transmission Date: 20091009
  Serious: Yes (Hospitalization, Other)
  Sender: FDA-Public Use
  Company Number: US-ASTRAZENECA-2006UW20977

PATIENT
  Age: 11144 Day
  Sex: Male
  Weight: 124.7 kg

DRUGS (31)
  1. SEROQUEL [Suspect]
     Indication: AFFECTIVE DISORDER
     Route: 048
     Dates: start: 20030101, end: 20060501
  2. SEROQUEL [Suspect]
     Indication: DEPRESSION
     Route: 048
     Dates: start: 20030101, end: 20060501
  3. SEROQUEL [Suspect]
     Indication: ANXIETY
     Route: 048
     Dates: start: 20030101, end: 20060501
  4. SEROQUEL [Suspect]
     Indication: PANIC ATTACK
     Route: 048
     Dates: start: 20030101, end: 20060501
  5. SEROQUEL [Suspect]
     Dosage: 25-100 MG
     Route: 048
     Dates: start: 20030702
  6. SEROQUEL [Suspect]
     Dosage: 25-100 MG
     Route: 048
     Dates: start: 20030702
  7. SEROQUEL [Suspect]
     Dosage: 25-100 MG
     Route: 048
     Dates: start: 20030702
  8. SEROQUEL [Suspect]
     Dosage: 25-100 MG
     Route: 048
     Dates: start: 20030702
  9. PREVACID [Suspect]
     Dates: start: 20030101
  10. ZYPREXA [Suspect]
     Dates: start: 20030101
  11. ZOLOFT [Suspect]
     Dates: start: 20030101
  12. TRILEPTAL [Concomitant]
  13. TRAMADOL [Concomitant]
  14. TYLENOL [Concomitant]
  15. EFFEXOR [Concomitant]
  16. DIFLUCAN [Concomitant]
  17. ERY-TAB [Concomitant]
  18. DEXAMETHASONE [Concomitant]
  19. LISINOPRIL [Concomitant]
  20. PROMETHAZINE [Concomitant]
  21. CYCLOBENZAPRINE [Concomitant]
  22. NAPROXEN [Concomitant]
  23. ACCUPRIL [Concomitant]
  24. CELEBREX [Concomitant]
  25. GLUCOTROL XL [Concomitant]
  26. GLUCOPHAGE [Concomitant]
  27. LIPITOR [Concomitant]
  28. LORCET-HD [Concomitant]
  29. IMITREX [Concomitant]
  30. LOPERAMIDE HCL [Concomitant]
  31. CLINORIL [Concomitant]

REACTIONS (19)
  - ABDOMINAL DISCOMFORT [None]
  - AFFECTIVE DISORDER [None]
  - ANXIETY DISORDER [None]
  - ARTHRALGIA [None]
  - BIPOLAR DISORDER [None]
  - CONJUNCTIVITIS [None]
  - DIABETES MELLITUS [None]
  - DIZZINESS [None]
  - GASTROENTERITIS [None]
  - HEADACHE [None]
  - MAJOR DEPRESSION [None]
  - OSTEOARTHRITIS [None]
  - PAIN IN EXTREMITY [None]
  - PATELLOFEMORAL PAIN SYNDROME [None]
  - SUICIDAL IDEATION [None]
  - SYNOVIAL CYST [None]
  - TENDONITIS [None]
  - TYPE 2 DIABETES MELLITUS [None]
  - ULCER [None]
